FAERS Safety Report 21189762 (Version 1)
Quarter: 2022Q3

REPORT INFORMATION
  Report Type: Spontaneous
  Country: CN (occurrence: CN)
  Receive Date: 20220809
  Receipt Date: 20220809
  Transmission Date: 20221027
  Serious: Yes (Other)
  Sender: FDA-Public Use
  Company Number: CN-PFIZER INC-PV202200038292

PATIENT
  Age: 52 Year
  Sex: Male
  Weight: 68 kg

DRUGS (3)
  1. EPIRUBICIN [Suspect]
     Active Substance: EPIRUBICIN
     Indication: Diffuse large B-cell lymphoma
     Dosage: 100 MG, 1X/DAY
     Route: 041
     Dates: start: 20220714, end: 20220714
  2. VINDESINE SULFATE [Suspect]
     Active Substance: VINDESINE SULFATE
     Indication: Diffuse large B-cell lymphoma
     Dosage: 5 MG, 1X/DAY
     Route: 041
     Dates: start: 20220714, end: 20220714
  3. PREDNISONE ACETATE [Concomitant]
     Active Substance: PREDNISONE ACETATE
     Indication: Diffuse large B-cell lymphoma
     Dosage: 100 MG, 1X/DAY
     Route: 048
     Dates: start: 20220714, end: 20220718

REACTIONS (1)
  - Hiccups [Recovering/Resolving]

NARRATIVE: CASE EVENT DATE: 20220714
